FAERS Safety Report 7396657-6 (Version None)
Quarter: 2011Q1

REPORT INFORMATION
  Report Type: 
  Country: None (occurrence: None)
  Receive Date: 20110331
  Receipt Date: 20110331
  Transmission Date: 20110831
  Serious: Yes (Hospitalization)
  Sender: FDA-Public Use
  Company Number: None

PATIENT
  Age: 33 Year
  Sex: Female
  Weight: 60.782 kg

DRUGS (1)
  1. IMURAN [Suspect]
     Indication: COLITIS ULCERATIVE
     Dosage: 50MG QD PO
     Route: 048

REACTIONS (2)
  - DUODENITIS HAEMORRHAGIC [None]
  - PANCREATITIS [None]
